FAERS Safety Report 13915793 (Version 1)
Quarter: 2017Q3

REPORT INFORMATION
  Report Type: Spontaneous
  Country: US (occurrence: None)
  Receive Date: 20170827
  Receipt Date: 20170827
  Transmission Date: 20171127
  Serious: Yes (Hospitalization, Other)
  Sender: FDA-Public Use
  Company Number: None

PATIENT
  Age: 75 Year
  Sex: Male
  Weight: 69.5 kg

DRUGS (3)
  1. NIVOLUMAB [Suspect]
     Active Substance: NIVOLUMAB
     Route: 042
     Dates: start: 20170403
  2. IPILMUMAB [Suspect]
     Active Substance: IPILIMUMAB
     Dosage: Q 6 WEEKS IV
     Route: 042
     Dates: start: 20170403
  3. RANOLAZINE. [Concomitant]
     Active Substance: RANOLAZINE

REACTIONS (3)
  - Device occlusion [None]
  - Angina pectoris [None]
  - Chest pain [None]

NARRATIVE: CASE EVENT DATE: 20170414
